FAERS Safety Report 21853173 (Version 3)
Quarter: 2023Q1

REPORT INFORMATION
  Report Type: Report from Study
  Country: PL (occurrence: None)
  Receive Date: 20230112
  Receipt Date: 20230130
  Transmission Date: 20230418
  Serious: Yes (Hospitalization)
  Sender: FDA-Public Use
  Company Number: PL-ROCHE-3235684

PATIENT
  Age: 66 Year
  Sex: Female
  Weight: 49 kg

DRUGS (12)
  1. ATEZOLIZUMAB [Suspect]
     Active Substance: ATEZOLIZUMAB
     Indication: Small cell lung cancer extensive stage
     Dosage: ON 01/AUG/2022, 16/DEC/2022 MOST RECENT DOSE OF ATEZOLIZUMAB PRIOR TO AE (ADVERSE EVENT) SAE (SERIOU
     Route: 041
     Dates: start: 20220706
  2. CARBOPLATIN [Suspect]
     Active Substance: CARBOPLATIN
     Indication: Small cell lung cancer extensive stage
     Dosage: ON 01/AUG/2022, 26/SEP/2022 MOST RECENT DOSE OF CARBOPLATIN PRIOR TO AE AND SAE WAS 422.46 MG
     Route: 042
     Dates: start: 20220706
  3. ETOPOSIDE [Suspect]
     Active Substance: ETOPOSIDE
     Indication: Small cell lung cancer extensive stage
     Dosage: ON 03/AUG/2022, 28/SEP/2022 MOST RECENT DOSE OF ETOPOSIDE PRIOR TO AE AND SAE WAS 148.08 MG
     Route: 065
     Dates: start: 20220706
  4. LURBINECTEDIN [Suspect]
     Active Substance: LURBINECTEDIN
     Indication: Small cell lung cancer extensive stage
     Dosage: DOSE LAST STUDY DRUG ADMIN PRIOR AE AND SAE IS 4.72MG ?START DATE OF MOST RECENT DOSE OF STUDY DRUG
     Route: 042
     Dates: start: 20221104
  5. NEBIVOLOL [Concomitant]
     Active Substance: NEBIVOLOL
     Indication: Hypertension
     Dosage: YES
     Dates: start: 2000
  6. RAMIPRIL [Concomitant]
     Active Substance: RAMIPRIL
     Indication: Hypertension
     Dosage: GIVEN FOR PROPHYLAXIS IS YES ;ONGOING: YES
     Dates: start: 2020
  7. ROSUVASTATIN [Concomitant]
     Active Substance: ROSUVASTATIN
     Dosage: YES
     Dates: start: 2015
  8. OMEPRAZOLE [Concomitant]
     Active Substance: OMEPRAZOLE
     Indication: Gastritis
     Dosage: GIVEN FOR PROPHYLAXIS IS YES ;ONGOING: YES
     Dates: start: 202201
  9. MORPHINE SULFATE [Concomitant]
     Active Substance: MORPHINE SULFATE
     Indication: Cough
     Dosage: YES
     Dates: start: 20220707
  10. FUROSEMIDE [Concomitant]
     Active Substance: FUROSEMIDE
     Indication: Peripheral swelling
     Dosage: YES
     Dates: start: 20220828
  11. FLUDROCORTISONE [Concomitant]
     Active Substance: FLUDROCORTISONE
     Indication: Hyponatraemia
     Dosage: YES
     Route: 048
     Dates: start: 20220705
  12. DICLOFENAC SODIUM [Concomitant]
     Active Substance: DICLOFENAC SODIUM
     Indication: Contusion
     Dates: start: 20221205

REACTIONS (1)
  - Panniculitis [Recovered/Resolved]

NARRATIVE: CASE EVENT DATE: 20230107
